FAERS Safety Report 4818652-0 (Version None)
Quarter: 2005Q4

REPORT INFORMATION
  Report Type: 
  Country: None (occurrence: None)
  Receive Date: 20051101
  Receipt Date: 20051014
  Transmission Date: 20060501
  Serious: Yes (Hospitalization, Disabling)
  Sender: FDA-Public Use
  Company Number: 409452

PATIENT
  Age: 16 Year
  Sex: Male
  Weight: 54.4 kg

DRUGS (1)
  1. ACCUTANE [Suspect]
     Indication: ACNE
     Dosage: 40 MG DAILY
     Dates: start: 19961003, end: 19970818

REACTIONS (87)
  - ABDOMINAL PAIN LOWER [None]
  - ABDOMINAL PAIN UPPER [None]
  - ANAEMIA [None]
  - ANAL DISCOMFORT [None]
  - ANAL POLYP [None]
  - ANOREXIA [None]
  - ANXIETY [None]
  - ARTHRALGIA [None]
  - ASTHENIA [None]
  - AUTOIMMUNE DISORDER [None]
  - BACK PAIN [None]
  - BLOOD CREATININE INCREASED [None]
  - BULIMIA NERVOSA [None]
  - CHILLS [None]
  - CHRONIC FATIGUE SYNDROME [None]
  - COLITIS [None]
  - CONDITION AGGRAVATED [None]
  - COUGH [None]
  - CROHN'S DISEASE [None]
  - DECREASED APPETITE [None]
  - DEPRESSION [None]
  - DRUG ABUSER [None]
  - DRY SKIN [None]
  - DYSPEPSIA [None]
  - DYSURIA [None]
  - EPISTAXIS [None]
  - ERECTILE DYSFUNCTION [None]
  - ERYTHEMA [None]
  - FISTULA [None]
  - FLANK PAIN [None]
  - FLATULENCE [None]
  - GASTRITIS [None]
  - GASTRITIS EROSIVE [None]
  - GASTROINTESTINAL DISORDER [None]
  - GASTROINTESTINAL HAEMORRHAGE [None]
  - GASTROOESOPHAGEAL REFLUX DISEASE [None]
  - GENITAL ULCERATION [None]
  - GLOMERULONEPHRITIS [None]
  - HAEMATOCHEZIA [None]
  - HEADACHE [None]
  - ILEAL PERFORATION [None]
  - ILEITIS [None]
  - INFLAMMATION [None]
  - INFLAMMATORY BOWEL DISEASE [None]
  - INJURY [None]
  - INSOMNIA [None]
  - INTESTINAL OBSTRUCTION [None]
  - IRRITABLE BOWEL SYNDROME [None]
  - LIGAMENT DISORDER [None]
  - MUCOSAL ULCERATION [None]
  - MULTI-ORGAN DISORDER [None]
  - MUSCLE STRAIN [None]
  - MUSCULOSKELETAL DISORDER [None]
  - NASAL CONGESTION [None]
  - NAUSEA [None]
  - NECK INJURY [None]
  - NEPHROLITHIASIS [None]
  - NORMOCHROMIC NORMOCYTIC ANAEMIA [None]
  - OEDEMA [None]
  - OSTEOARTHRITIS [None]
  - PANIC ATTACK [None]
  - PELVIC ABSCESS [None]
  - PERIANAL ABSCESS [None]
  - PERIRECTAL ABSCESS [None]
  - POLYP [None]
  - POST PROCEDURAL COMPLICATION [None]
  - PROCTALGIA [None]
  - PYREXIA [None]
  - RECTAL FISSURE [None]
  - RECTAL HAEMORRHAGE [None]
  - RENAL DISORDER [None]
  - RHEUMATIC FEVER [None]
  - RHEUMATOID ARTHRITIS [None]
  - RHINITIS [None]
  - SKIN PAPILLOMA [None]
  - SLEEP APNOEA SYNDROME [None]
  - SOMNOLENCE [None]
  - SUICIDAL IDEATION [None]
  - TACHYCARDIA [None]
  - TENDON CALCIFICATION [None]
  - URETERIC OBSTRUCTION [None]
  - UROGENITAL DISORDER [None]
  - VISION BLURRED [None]
  - VISUAL DISTURBANCE [None]
  - VOMITING [None]
  - WEIGHT DECREASED [None]
  - WHITE BLOOD CELL COUNT INCREASED [None]
